FAERS Safety Report 7372204-X (Version None)
Quarter: 2011Q1

REPORT INFORMATION
  Report Type: 
  Country: None (occurrence: None)
  Receive Date: 20110322
  Receipt Date: 20110322
  Transmission Date: 20110831
  Serious: Yes (Hospitalization)
  Sender: FDA-Public Use
  Company Number: None

PATIENT
  Sex: Female
  Weight: 46.8 kg

DRUGS (2)
  1. PANITUMUMAB 9MG/KG [Suspect]
     Indication: COLON CANCER
     Dosage: 434MG Q 21 DAYS IV
     Route: 042
     Dates: start: 20110225
  2. BEVACIZUMAB 7.5MG/M2 [Suspect]
     Indication: COLON CANCER
     Dosage: 361.4MG Q 21 DAYS IV
     Route: 042
     Dates: start: 20110225

REACTIONS (7)
  - DECREASED APPETITE [None]
  - NAUSEA [None]
  - COLON CANCER METASTATIC [None]
  - INTESTINAL OBSTRUCTION [None]
  - CONFUSIONAL STATE [None]
  - VOMITING [None]
  - NEOPLASM MALIGNANT [None]
